FAERS Safety Report 26043465 (Version 1)
Quarter: 2025Q4

REPORT INFORMATION
  Report Type: Spontaneous
  Country: JP (occurrence: JP)
  Receive Date: 20251113
  Receipt Date: 20251113
  Transmission Date: 20260117
  Serious: Yes (Death, Hospitalization, Other)
  Sender: BRISTOL-MYERS SQUIBB COMPANY
  Company Number: JP-TAIHO-2025-011083

PATIENT
  Age: 9 Decade
  Sex: Male

DRUGS (8)
  1. ABRAXANE [Suspect]
     Active Substance: PACLITAXEL
     Indication: Metastatic gastric cancer
     Dosage: DETAILS NOT REPORTED, CYCLE 1?DAILY DOSE: 100 MILLIGRAM(S)/SQ. METER
     Route: 041
  2. ABRAXANE [Suspect]
     Active Substance: PACLITAXEL
     Dosage: CYCLES 2-5?DAILY DOSE: 100 MILLIGRAM(S)/SQ. METER
     Route: 041
     Dates: start: 20250623, end: 20250812
  3. CYRAMZA [Suspect]
     Active Substance: RAMUCIRUMAB
     Indication: Metastatic gastric cancer
     Dosage: NI, CYCLE 1
     Route: 041
  4. CYRAMZA [Suspect]
     Active Substance: RAMUCIRUMAB
     Dosage: DOSE NOT REPORTED, CYCLES 2-5
     Route: 041
     Dates: start: 20250623, end: 20250812
  5. BICALUTAMIDE [Concomitant]
     Active Substance: BICALUTAMIDE
     Indication: Prostate cancer
     Dosage: NI, TAKEN SINCE BEFORE THE VISIT TO THE REPORTING HOSPITAL
     Route: 048
  6. UNSPECIFIED INGREDIENT [Concomitant]
     Active Substance: UNSPECIFIED INGREDIENT
     Indication: Neutrophil count decreased
     Dosage: NI
     Dates: start: 20250616, end: 20250618
  7. UNSPECIFIED INGREDIENT [Concomitant]
     Active Substance: UNSPECIFIED INGREDIENT
     Dosage: NI
  8. PIPERACILLIN SODIUM\TAZOBACTAM SODIUM [Concomitant]
     Active Substance: PIPERACILLIN SODIUM\TAZOBACTAM SODIUM
     Indication: Product used for unknown indication
     Dosage: NI
     Dates: start: 20250818, end: 20250825

REACTIONS (6)
  - Pneumonia aspiration [Fatal]
  - Interstitial lung disease [Fatal]
  - Neutrophil count decreased [Recovered/Resolved]
  - White blood cell count decreased [Unknown]
  - Stomatitis [Recovering/Resolving]
  - Febrile neutropenia [Recovered/Resolved]

NARRATIVE: CASE EVENT DATE: 20250616
